FAERS Safety Report 16282316 (Version 2)
Quarter: 2019Q2

REPORT INFORMATION
  Report Type: Report from Study
  Country: FR (occurrence: FR)
  Receive Date: 20190507
  Receipt Date: 20190517
  Transmission Date: 20190711
  Serious: Yes (Other)
  Sender: FDA-Public Use
  Company Number: FR-INCYTE CORPORATION-2019IN004489

PATIENT

DRUGS (2)
  1. JAKAVI [Suspect]
     Active Substance: RUXOLITINIB
     Indication: PRIMARY MYELOFIBROSIS
     Dosage: 20 MG, UNK
     Route: 048
     Dates: start: 20190221, end: 20190318
  2. JAKAVI [Suspect]
     Active Substance: RUXOLITINIB
     Dosage: 10 MG, UNK
     Route: 048
     Dates: start: 20190402

REACTIONS (2)
  - Thrombocytopenia [Recovering/Resolving]
  - Haematotoxicity [Recovered/Resolved]

NARRATIVE: CASE EVENT DATE: 20190306
